FAERS Safety Report 16210044 (Version 3)
Quarter: 2019Q2

REPORT INFORMATION
  Report Type: Spontaneous
  Country: US (occurrence: US)
  Receive Date: 20190417
  Receipt Date: 20190516
  Transmission Date: 20190711
  Serious: Yes (Other)
  Sender: FDA-Public Use
  Company Number: PHEH2019US015970

PATIENT
  Age: 61 Year
  Sex: Male
  Weight: 74.83 kg

DRUGS (1)
  1. AMITRIPTYLINE [Suspect]
     Active Substance: AMITRIPTYLINE
     Indication: NEUROPATHY PERIPHERAL
     Dosage: 25 MG, UNK
     Route: 048
     Dates: start: 20190305, end: 20190324

REACTIONS (7)
  - Flushing [Unknown]
  - Overdose [Recovered/Resolved]
  - Agitation [Unknown]
  - Thirst [Unknown]
  - Erythema [Unknown]
  - Serotonin syndrome [Unknown]
  - Drug intolerance [Unknown]

NARRATIVE: CASE EVENT DATE: 20190324
